FAERS Safety Report 13444877 (Version 1)
Quarter: 2017Q2

REPORT INFORMATION
  Report Type: Spontaneous
  Country: GB (occurrence: GB)
  Receive Date: 20170414
  Receipt Date: 20170414
  Transmission Date: 20170830
  Serious: Yes (Hospitalization, Other)
  Sender: FDA-Public Use
  Company Number: GB-TEVA-758057ACC

PATIENT
  Age: 74 Year
  Sex: Male
  Weight: 80 kg

DRUGS (15)
  1. BISOPROLOL [Concomitant]
     Active Substance: BISOPROLOL
     Dosage: 1.25 MILLIGRAM DAILY;
     Dates: start: 20170110
  2. LACTULOSE. [Concomitant]
     Active Substance: LACTULOSE
     Dosage: 10 ML DAILY; TWO 5ML SPOONFULS
     Route: 048
     Dates: start: 20161222
  3. OMEPRAZOLE. [Concomitant]
     Active Substance: OMEPRAZOLE
     Dosage: 20 MILLIGRAM DAILY;
     Dates: start: 20161228
  4. GABAPENTIN. [Suspect]
     Active Substance: GABAPENTIN
     Route: 048
  5. LANSOPRAZOLE. [Concomitant]
     Active Substance: LANSOPRAZOLE
     Dosage: 1 OR 2 CAPSULE DAILY
     Dates: start: 20170302
  6. TAMSULOSIN [Concomitant]
     Active Substance: TAMSULOSIN
     Dosage: 400 MICROGRAM DAILY; IN THE MORNING
     Dates: start: 20161222
  7. LEVITRA [Concomitant]
     Active Substance: VARDENAFIL HYDROCHLORIDE TRIHYDRATE
     Dosage: PRIOR TO SEXUAL ACTIVITY
     Dates: start: 20161108
  8. PARACETAMOL [Concomitant]
     Active Substance: ACETAMINOPHEN
     Dosage: 8 DOSAGE FORMS DAILY;
     Dates: start: 20161222
  9. LORATADINE. [Concomitant]
     Active Substance: LORATADINE
     Dosage: TAKE ONE OR ONE AND A HALF DAILY WHEN REQUIRED
     Dates: start: 20161108
  10. RANITIDINE. [Concomitant]
     Active Substance: RANITIDINE
     Dosage: 300 MILLIGRAM DAILY;
     Dates: start: 20170126
  11. XARELTO [Concomitant]
     Active Substance: RIVAROXABAN
     Dosage: 20 MILLIGRAM DAILY;
     Dates: start: 20161221
  12. ELOCON [Concomitant]
     Active Substance: MOMETASONE FUROATE
     Dosage: 1 DOSAGE FORMS DAILY; APPLY THINLY
     Dates: start: 20170208
  13. GAVISCON ADVANCE [Concomitant]
     Active Substance: POTASSIUM BICARBONATE\SODIUM ALGINATE
     Dosage: 60 ML DAILY;
     Route: 048
     Dates: start: 20161221
  14. DEPO-MEDRONE [Concomitant]
     Active Substance: METHYLPREDNISOLONE
     Dosage: STTA ; L97233 03/2020
     Dates: start: 20170323
  15. POLYFAX [Concomitant]
     Dosage: 2-4 TIMES DAILY
     Dates: start: 20170302

REACTIONS (2)
  - Malaise [Unknown]
  - Hyponatraemia [Recovered/Resolved]

NARRATIVE: CASE EVENT DATE: 20161215
